FAERS Safety Report 6551901-X (Version None)
Quarter: 2010Q1

REPORT INFORMATION
  Report Type: 
  Country: None (occurrence: None)
  Receive Date: 20100126
  Receipt Date: 20100118
  Transmission Date: 20100710
  Serious: Yes (Death)
  Sender: FDA-Public Use
  Company Number: FR-PFIZER INC-2010006264

PATIENT
  Age: 80 Year
  Sex: Male

DRUGS (11)
  1. TAHOR [Suspect]
     Dosage: 10 MG, 1X/DAY
     Route: 048
  2. METFORMIN HCL [Suspect]
     Dosage: 1000 MG, 2X/DAY
     Route: 048
  3. ENANTONE - SLOW RELEASE [Suspect]
     Dosage: 30 MG, EVERY 3 MONTHS
     Route: 058
     Dates: start: 20090207
  4. NOVONORM [Suspect]
     Dosage: 1 MG, 2X/DAY
     Route: 048
  5. COMTAN [Suspect]
     Dosage: 200 MG, 5 TIMES A DAY
     Route: 048
  6. MODOPAR [Suspect]
     Dosage: 125 MG, 5 TIMES A DAY
     Route: 048
  7. COZAAR [Suspect]
     Dosage: 50 MG, 1X/DAY
     Route: 048
  8. EQUANIL [Suspect]
     Dosage: 250 MG, 2X/DAY
     Route: 048
  9. ATHYMIL [Suspect]
     Dosage: 30 MG, 1X/DAY
     Route: 048
  10. LEXOMIL [Suspect]
     Dosage: 0.25 MG, 2X/DAY
     Route: 048
  11. FORLAX [Suspect]
     Dosage: 2 DF, 1X/DAY

REACTIONS (1)
  - DEATH [None]
